FAERS Safety Report 20441776 (Version 3)
Quarter: 2022Q1

REPORT INFORMATION
  Report Type: Spontaneous
  Country: US (occurrence: US)
  Receive Date: 20220208
  Receipt Date: 20220305
  Transmission Date: 20220423
  Serious: Yes (Hospitalization, Other)
  Sender: FDA-Public Use
  Company Number: US-JNJFOC-20220161129

PATIENT
  Age: 73 Year
  Sex: Female
  Weight: 50.5 kg

DRUGS (3)
  1. OPSUMIT [Suspect]
     Active Substance: MACITENTAN
     Indication: Product used for unknown indication
     Route: 048
     Dates: start: 202201
  2. PREDNISONE [Concomitant]
     Active Substance: PREDNISONE
     Indication: Product used for unknown indication
     Route: 065
  3. SILDENAFIL [Concomitant]
     Active Substance: SILDENAFIL

REACTIONS (6)
  - Fungal oesophagitis [Recovering/Resolving]
  - Blood sodium decreased [Unknown]
  - Muscular weakness [Recovering/Resolving]
  - Medication error [Unknown]
  - Muscle atrophy [Recovering/Resolving]
  - Reflux gastritis [Recovering/Resolving]

NARRATIVE: CASE EVENT DATE: 20220118
